FAERS Safety Report 4350410-6 (Version None)
Quarter: 2004Q2

REPORT INFORMATION
  Report Type: 
  Country: None (occurrence: None)
  Receive Date: 20040427
  Receipt Date: 20040416
  Transmission Date: 20050107
  Serious: Yes (Other)
  Sender: FDA-Public Use
  Company Number: S03-USA-05001-01

PATIENT
  Age: 53 Year
  Sex: Female
  Weight: 47.6277 kg

DRUGS (5)
  1. LEXAPRO [Suspect]
     Indication: PAIN
     Dosage: 10 MG QHS PO
     Route: 048
     Dates: start: 20030312, end: 20031009
  2. LEXAPRO [Suspect]
     Indication: PAIN
     Dosage: 5 MG QD PO
     Route: 048
     Dates: start: 20031010, end: 20031203
  3. DURAGESIC [Concomitant]
  4. STADOL [Concomitant]
  5. PREMARIN [Concomitant]

REACTIONS (10)
  - EOSINOPHIL COUNT INCREASED [None]
  - HYPOTHYROIDISM [None]
  - LEUKOPENIA [None]
  - LYMPHOCYTE COUNT INCREASED [None]
  - MUSCLE SPASMS [None]
  - NEUTROPHIL COUNT INCREASED [None]
  - NORMOCHROMIC NORMOCYTIC ANAEMIA [None]
  - PLATELET COUNT DECREASED [None]
  - PURPURA [None]
  - SOMNOLENCE [None]
